FAERS Safety Report 20847660 (Version 2)
Quarter: 2022Q2

REPORT INFORMATION
  Report Type: Spontaneous
  Country: CO (occurrence: CO)
  Receive Date: 20220519
  Receipt Date: 20220531
  Transmission Date: 20220720
  Serious: Yes (Hospitalization)
  Sender: FDA-Public Use
  Company Number: CO-BAYER-2022P002584

PATIENT
  Age: 56 Year
  Sex: Male

DRUGS (2)
  1. EYLEA [Suspect]
     Active Substance: AFLIBERCEPT
     Indication: Product used for unknown indication
     Dosage: 2 MG, Q4WK (SOLUTION FOR INJECTION)
     Route: 031
  2. EYLEA [Suspect]
     Active Substance: AFLIBERCEPT
     Dosage: MOST RECENT DOSE OF THE MEDICINAL PRODUCT BEFORE THE ADVERSE EVENT (SOLUTION FOR INJECTION)
     Dates: start: 20220505, end: 20220505

REACTIONS (3)
  - Foot fracture [Not Recovered/Not Resolved]
  - Limb injury [Unknown]
  - Pain [Not Recovered/Not Resolved]

NARRATIVE: CASE EVENT DATE: 20220508
